FAERS Safety Report 8294782-9 (Version None)
Quarter: 2012Q2

REPORT INFORMATION
  Report Type: 
  Country: None (occurrence: None)
  Receive Date: 20120418
  Receipt Date: 20120411
  Transmission Date: 20120825
  Serious: Yes (Other)
  Sender: FDA-Public Use
  Company Number: US-AMGEN-USASP2012023063

PATIENT
  Age: 41 Year
  Sex: Female

DRUGS (1)
  1. ENBREL [Suspect]
     Indication: ANKYLOSING SPONDYLITIS
     Dosage: 50 MG, QWK
     Dates: start: 20050301, end: 20111231

REACTIONS (6)
  - FIBROMYALGIA [None]
  - ANKYLOSING SPONDYLITIS [None]
  - MOBILITY DECREASED [None]
  - DEPRESSION [None]
  - AGITATION [None]
  - THERAPEUTIC RESPONSE DECREASED [None]
